FAERS Safety Report 4373814-4 (Version None)
Quarter: 2004Q2

REPORT INFORMATION
  Report Type: 
  Country: None (occurrence: None)
  Receive Date: 20040603
  Receipt Date: 20040525
  Transmission Date: 20050107
  Serious: Yes (Hospitalization, Disabling)
  Sender: FDA-Public Use
  Company Number: AT-2004-025859

PATIENT
  Age: 43 Year
  Sex: Female

DRUGS (1)
  1. MIRENA [Suspect]
     Indication: CONTRACEPTION
     Dosage: 20 UG/DAY, CONT, INTRA-UTERINE
     Route: 015

REACTIONS (6)
  - CEREBRAL ISCHAEMIA [None]
  - FORMICATION [None]
  - HEMIANOPIA [None]
  - NAUSEA [None]
  - PARAESTHESIA [None]
  - VERTIGO [None]
